FAERS Safety Report 21339983 (Version 3)
Quarter: 2023Q2

REPORT INFORMATION
  Report Type: Report from Study
  Country: US (occurrence: US)
  Receive Date: 20220915
  Receipt Date: 20230615
  Transmission Date: 20230722
  Serious: Yes (Death, Hospitalization, Other)
  Sender: FDA-Public Use
  Company Number: US-ACADIA PHARMACEUTICALS INC.-ACA-2022-PIM-002856

PATIENT
  Age: 85 Year
  Sex: Male

DRUGS (10)
  1. NUPLAZID [Suspect]
     Active Substance: PIMAVANSERIN TARTRATE
     Indication: Parkinson^s disease
     Dosage: 34 MILLIGRAM, QD
     Route: 048
     Dates: start: 202207, end: 2022
  2. NUPLAZID [Suspect]
     Active Substance: PIMAVANSERIN TARTRATE
     Indication: Parkinson^s disease psychosis
     Dosage: 34 MILLIGRAM, QD
     Route: 048
     Dates: end: 20230525
  3. QUETIAPINE FUMARATE [Concomitant]
     Active Substance: QUETIAPINE FUMARATE
  4. TAMSULOSIN [Concomitant]
     Active Substance: TAMSULOSIN
  5. ROPINIROLE [Concomitant]
     Active Substance: ROPINIROLE
  6. OMEPRAZOLE [Concomitant]
     Active Substance: OMEPRAZOLE
  7. AMANTADINE [Concomitant]
     Active Substance: AMANTADINE
  8. GLYCOPYRROLATE [Concomitant]
     Active Substance: GLYCOPYRROLATE
  9. SIMVASTATIN [Concomitant]
     Active Substance: SIMVASTATIN
  10. CARBIDOPA\LEVODOPA [Concomitant]
     Active Substance: CARBIDOPA\LEVODOPA

REACTIONS (3)
  - Death [Fatal]
  - Urinary tract infection [Unknown]
  - Confusional state [Unknown]

NARRATIVE: CASE EVENT DATE: 20230525
